FAERS Safety Report 17938340 (Version 1)
Quarter: 2020Q2

REPORT INFORMATION
  Report Type: Spontaneous
  Country: FR (occurrence: FR)
  Receive Date: 20200624
  Receipt Date: 20200624
  Transmission Date: 20200714
  Serious: Yes (Hospitalization)
  Sender: FDA-Public Use
  Company Number: NVSC2020FR173908

PATIENT
  Age: 71 Year
  Sex: Female

DRUGS (2)
  1. VALACICLOVIR SANDOZ 500 MG - FILMTABLETTEN [Suspect]
     Active Substance: VALACYCLOVIR HYDROCHLORIDE
     Indication: HERPES ZOSTER
     Dosage: 3000 MG, QD
     Route: 048
     Dates: start: 20200412, end: 20200414
  2. CELIPROLOL [Concomitant]
     Active Substance: CELIPROLOL
     Indication: TACHYCARDIA
     Dosage: 200 MG, QD (1-0-0)
     Route: 048
     Dates: start: 2017

REACTIONS (1)
  - Pancreatitis acute [Not Recovered/Not Resolved]

NARRATIVE: CASE EVENT DATE: 20200413
